FAERS Safety Report 19214298 (Version 1)
Quarter: 2021Q2

REPORT INFORMATION
  Report Type: Spontaneous
  Country: TR (occurrence: TR)
  Receive Date: 20210504
  Receipt Date: 20210504
  Transmission Date: 20210717
  Serious: Yes (Hospitalization, Other)
  Sender: FDA-Public Use
  Company Number: NVSC2021TR091593

PATIENT
  Age: 63 Year
  Sex: Male

DRUGS (3)
  1. IMATINIB. [Suspect]
     Active Substance: IMATINIB MESYLATE
     Indication: CHRONIC MYELOID LEUKAEMIA
     Dosage: 400 MG, QD
     Route: 065
     Dates: start: 201901
  2. IMATINIB. [Suspect]
     Active Substance: IMATINIB MESYLATE
     Dosage: 200 MG
     Route: 065
  3. BOSUTINIB [Suspect]
     Active Substance: BOSUTINIB
     Indication: CHRONIC MYELOID LEUKAEMIA
     Dosage: 300 MG, QD
     Route: 065
     Dates: start: 202001

REACTIONS (9)
  - Autoimmune haemolytic anaemia [Unknown]
  - Haemorrhoidal haemorrhage [Unknown]
  - Haemoglobin decreased [Unknown]
  - Amyloidosis [Unknown]
  - Chronic myeloid leukaemia [Unknown]
  - Diarrhoea [Unknown]
  - Pleural effusion [Unknown]
  - Gouty arthritis [Unknown]
  - Acute kidney injury [Unknown]
